FAERS Safety Report 4664926-6 (Version None)
Quarter: 2005Q2

REPORT INFORMATION
  Report Type: 
  Country: None (occurrence: None)
  Receive Date: 20050518
  Receipt Date: 20050512
  Transmission Date: 20051028
  Serious: Yes (Death)
  Sender: FDA-Public Use
  Company Number: 2005AP02792

PATIENT
  Sex: Male

DRUGS (2)
  1. SEROQUEL [Suspect]
     Route: 048
  2. SERENACE [Suspect]

REACTIONS (3)
  - CONDITION AGGRAVATED [None]
  - DEATH [None]
  - HUNTINGTON'S CHOREA [None]
